FAERS Safety Report 19991016 (Version 1)
Quarter: 2021Q4

REPORT INFORMATION
  Report Type: Spontaneous
  Country: US (occurrence: US)
  Receive Date: 20211025
  Receipt Date: 20211025
  Transmission Date: 20220303
  Serious: No
  Sender: FDA-Public Use
  Company Number: None

PATIENT
  Sex: Male

DRUGS (1)
  1. AMBRISENTAN [Suspect]
     Active Substance: AMBRISENTAN

REACTIONS (7)
  - Fatigue [None]
  - Dyspnoea exertional [None]
  - Dizziness [None]
  - Depression [None]
  - Cough [None]
  - Positive airway pressure therapy [None]
  - Diabetes mellitus [None]
